FAERS Safety Report 9805719 (Version 1)
Quarter: 2014Q1

REPORT INFORMATION
  Report Type: Spontaneous
  Country: US (occurrence: US)
  Receive Date: 20140109
  Receipt Date: 20140109
  Transmission Date: 20141002
  Serious: No
  Sender: FDA-Public Use
  Company Number: US-BAYER-2014-004053

PATIENT
  Age: 63 Year
  Sex: Female
  Weight: 95 kg

DRUGS (1)
  1. ALEVE TABLET [Suspect]
     Indication: PROCEDURAL PAIN
     Dosage: 2 DF, BID
     Route: 048
     Dates: start: 20140107

REACTIONS (2)
  - Extra dose administered [None]
  - Drug ineffective [None]
